FAERS Safety Report 12459519 (Version 2)
Quarter: 2016Q2

REPORT INFORMATION
  Report Type: Spontaneous
  Country: BG (occurrence: BG)
  Receive Date: 20160613
  Receipt Date: 20160620
  Transmission Date: 20160815
  Serious: Yes (Hospitalization)
  Sender: FDA-Public Use
  Company Number: BG-JNJFOC-20160602700

PATIENT
  Sex: Female
  Weight: 130 kg

DRUGS (2)
  1. STELARA [Suspect]
     Active Substance: USTEKINUMAB
     Indication: PSORIATIC ARTHROPATHY
     Dosage: AS PER SMPC, APPROXIMATE TOTAL NUMBER OF INJECTIONS PATIENT RECEIVED 16 INJECTIONS X 45 MG
     Route: 058
     Dates: start: 201410, end: 201604
  2. MOXOGAMMA [Concomitant]
     Active Substance: MOXONIDINE
     Indication: HYPERTENSION
     Route: 048
     Dates: start: 2010

REACTIONS (2)
  - Post procedural infection [Unknown]
  - Abdominal neoplasm [Recovering/Resolving]

NARRATIVE: CASE EVENT DATE: 2016
